FAERS Safety Report 9842673 (Version 2)
Quarter: 2014Q1

REPORT INFORMATION
  Report Type: Report from Study
  Country: BR (occurrence: BR)
  Receive Date: 20140124
  Receipt Date: 20140226
  Transmission Date: 20141002
  Serious: Yes (Other)
  Sender: FDA-Public Use
  Company Number: PHHY2014BR008876

PATIENT
  Age: 78 Year
  Sex: Male
  Weight: 80 kg

DRUGS (3)
  1. DIOVAN HCT [Suspect]
     Indication: HYPERTENSION
     Dosage: 1 TABLET (320/12.5 MG) DAILY
     Route: 048
     Dates: start: 201303
  2. ENALAPRIL [Suspect]
     Indication: HYPERTENSION
     Dosage: 2 TABLET (10 MG), 2 TIMES A DAY
     Dates: start: 201303
  3. FERROUS SULFATE [Suspect]
     Indication: ANAEMIA
     Dosage: 2 TABLET (40 MG), BEFORE BREAKFAST AND DINNER
     Route: 048

REACTIONS (3)
  - Cerebrovascular accident [Recovered/Resolved]
  - Monoplegia [Recovered/Resolved]
  - Coagulopathy [Unknown]
